FAERS Safety Report 25878125 (Version 1)
Quarter: 2025Q4

REPORT INFORMATION
  Report Type: Spontaneous
  Country: EU (occurrence: EU)
  Receive Date: 20251003
  Receipt Date: 20251003
  Transmission Date: 20260118
  Serious: Yes (Life-Threatening, Hospitalization)
  Sender: SANDOZ
  Company Number: None

PATIENT
  Age: 42 Year
  Sex: Female

DRUGS (5)
  1. MORPHINE SULFATE [Suspect]
     Active Substance: MORPHINE SULFATE
     Indication: Poisoning deliberate
     Dosage: 420 MG
     Route: 048
     Dates: start: 20250828, end: 20250828
  2. GABAPENTIN [Suspect]
     Active Substance: GABAPENTIN
     Indication: Poisoning deliberate
     Dosage: 1 DF
     Route: 048
     Dates: start: 20250828, end: 20250828
  3. ACETAMINOPHEN\OPIUM [Suspect]
     Active Substance: ACETAMINOPHEN\OPIUM
     Indication: Poisoning deliberate
     Dosage: 1 DF(500 MG/25 MG)
     Route: 048
     Dates: start: 20250828, end: 20250828
  4. DULOXETINE [Concomitant]
     Active Substance: DULOXETINE
     Indication: Depression
     Dosage: 30 MG, QD
     Route: 048
  5. LEVONORGESTREL [Concomitant]
     Active Substance: LEVONORGESTREL
     Indication: Contraception
     Dosage: 1 DF, QD
     Route: 048

REACTIONS (2)
  - Coma [Recovered/Resolved]
  - Poisoning deliberate [Recovered/Resolved]

NARRATIVE: CASE EVENT DATE: 20250828
